FAERS Safety Report 7110262-8 (Version None)
Quarter: 2010Q4

REPORT INFORMATION
  Report Type: 
  Country: None (occurrence: None)
  Receive Date: 20101118
  Receipt Date: 20101111
  Transmission Date: 20110411
  Serious: Yes (Other)
  Sender: FDA-Public Use
  Company Number: IT-BAYER-201046865GPV

PATIENT
  Age: 73 Year
  Sex: Female

DRUGS (3)
  1. CIPROXIN [Suspect]
     Indication: BRONCHITIS
     Route: 048
     Dates: start: 20101019, end: 20101029
  2. COUMADIN [Suspect]
     Indication: CARDIAC VALVE PROSTHESIS USER
     Route: 048
     Dates: start: 19830605, end: 20101025
  3. MACLADIN [Suspect]
     Indication: BRONCHITIS
     Route: 048
     Dates: start: 20101019, end: 20101027

REACTIONS (1)
  - INTERNATIONAL NORMALISED RATIO INCREASED [None]
